FAERS Safety Report 9404845 (Version 1)
Quarter: 2013Q3

REPORT INFORMATION
  Report Type: Spontaneous
  Country: US (occurrence: US)
  Receive Date: 20130717
  Receipt Date: 20130717
  Transmission Date: 20140515
  Serious: No
  Sender: FDA-Public Use
  Company Number: US-BAYER-2013-081255

PATIENT
  Age: 40 Year
  Sex: Male

DRUGS (1)
  1. STAXYN (FDT/ODT) [Suspect]
     Indication: ERECTILE DYSFUNCTION
     Dosage: 10 MG, SIX TIMES
     Route: 048
     Dates: start: 201207, end: 201207

REACTIONS (2)
  - Headache [Not Recovered/Not Resolved]
  - Drug ineffective [None]
